FAERS Safety Report 4801477-X (Version None)
Quarter: 2005Q4

REPORT INFORMATION
  Report Type: 
  Country: None (occurrence: None)
  Receive Date: 20051018
  Receipt Date: 20051007
  Transmission Date: 20060501
  Serious: Yes (Other)
  Sender: FDA-Public Use
  Company Number: NO-JNJFOC-20051001572

PATIENT
  Sex: Female
  Weight: 77.4 kg

DRUGS (15)
  1. REMICADE [Suspect]
     Indication: RHEUMATOID ARTHRITIS
     Route: 042
  2. ENBREL [Suspect]
     Indication: RHEUMATOID ARTHRITIS
     Dosage: EVERY 10TH TO 14TH DAY.
  3. METHOTREXATE [Concomitant]
     Route: 048
  4. METHOTREXATE [Concomitant]
     Indication: RHEUMATOID ARTHRITIS
     Dosage: 2.5 - 7MG/WEEK
     Route: 048
  5. PREDNISOLONE [Concomitant]
  6. PREDNISOLONE [Concomitant]
     Indication: RHEUMATOID ARTHRITIS
     Dosage: 2.5-10MG/DAY
  7. FOLIC ACID [Concomitant]
  8. LOSEC [Concomitant]
     Indication: DYSPEPSIA
     Dosage: 20-40MG/DAY
  9. ZANTAC [Concomitant]
     Indication: DYSPEPSIA
     Dosage: 1-2 TIMES DAILY
     Route: 048
  10. CALCIGRAN [Concomitant]
  11. CALCIGRAN [Concomitant]
  12. CALCIGRAN [Concomitant]
  13. CALCIGRAN [Concomitant]
  14. ZOMIG [Concomitant]
     Dosage: AS REQUIRED
  15. ZOPICLONE [Concomitant]
     Indication: INSOMNIA
     Dosage: AS REQUIRED, RARE USE

REACTIONS (1)
  - BASAL CELL CARCINOMA [None]
